FAERS Safety Report 23064468 (Version 1)
Quarter: 2023Q4

REPORT INFORMATION
  Report Type: Spontaneous
  Country: US (occurrence: None)
  Receive Date: 20231013
  Receipt Date: 20231013
  Transmission Date: 20240110
  Serious: Yes (Death, Other)
  Sender: FDA-Public Use
  Company Number: 2023A232759

PATIENT

DRUGS (11)
  1. FULVESTRANT [Suspect]
     Active Substance: FULVESTRANT
     Route: 030
     Dates: start: 20180423, end: 20180707
  2. ANASTROZOLE [Suspect]
     Active Substance: ANASTROZOLE
     Route: 048
     Dates: start: 20180219, end: 20180416
  3. PALBOCICLIB [Suspect]
     Active Substance: PALBOCICLIB
     Route: 048
     Dates: start: 20180315, end: 20180404
  4. PALBOCICLIB [Suspect]
     Active Substance: PALBOCICLIB
     Route: 048
     Dates: start: 20180219, end: 20180306
  5. PALBOCICLIB [Suspect]
     Active Substance: PALBOCICLIB
     Dosage: 14 DAYS ON 7 OFF
     Route: 048
     Dates: start: 20180502, end: 20180515
  6. PALBOCICLIB [Suspect]
     Active Substance: PALBOCICLIB
     Dosage: 14 DAYS ON 7 OFF
     Route: 048
     Dates: start: 20180502, end: 20180604
  7. PALBOCICLIB [Suspect]
     Active Substance: PALBOCICLIB
     Dosage: 14 DAYS ON 7 OFF
     Route: 048
     Dates: start: 20180612, end: 20180625
  8. PALBOCICLIB [Suspect]
     Active Substance: PALBOCICLIB
     Dosage: 14 DAYS ON 7 OFF
     Route: 048
     Dates: start: 20180729, end: 20180816
  9. PALBOCICLIB [Suspect]
     Active Substance: PALBOCICLIB
     Dosage: 14 DAYS ON 7 OFF
     Route: 048
     Dates: start: 20180703, end: 20180716
  10. DOXORUBICIN HYDROCHLORIDE [Suspect]
     Active Substance: DOXORUBICIN HYDROCHLORIDE
     Dates: start: 20180928, end: 20181026
  11. DOXORUBICIN [Suspect]
     Active Substance: DOXORUBICIN
     Dates: start: 20180928, end: 20181026

REACTIONS (1)
  - Breast cancer [Fatal]

NARRATIVE: CASE EVENT DATE: 20181121
